FAERS Safety Report 13735987 (Version 1)
Quarter: 2017Q3

REPORT INFORMATION
  Report Type: Spontaneous
  Country: None (occurrence: US)
  Receive Date: 20170707
  Receipt Date: 20170707
  Transmission Date: 20171127
  Serious: Yes (Other)
  Sender: FDA-Public Use
  Company Number: None

PATIENT
  Age: 68 Year
  Sex: Female

DRUGS (2)
  1. SUTENT [Suspect]
     Active Substance: SUNITINIB MALATE
     Route: 048
     Dates: start: 20170317, end: 20170629
  2. SUTENT [Suspect]
     Active Substance: SUNITINIB MALATE
     Indication: RENAL CELL CARCINOMA
     Route: 048
     Dates: start: 20170630

REACTIONS (13)
  - Ulcer [None]
  - Alopecia [None]
  - Tongue ulceration [None]
  - Lip infection [None]
  - Decreased appetite [None]
  - Ageusia [None]
  - Abdominal pain upper [None]
  - Diarrhoea [None]
  - Fatigue [None]
  - Inflammation [None]
  - Oral infection [None]
  - Urinary tract infection [None]
  - Fungal infection [None]
